FAERS Safety Report 20016520 (Version 1)
Quarter: 2021Q4

REPORT INFORMATION
  Report Type: Spontaneous
  Country: US (occurrence: None)
  Receive Date: 20211104
  Receipt Date: 20211104
  Transmission Date: 20220303
  Serious: Yes (Hospitalization)
  Sender: FDA-Public Use
  Company Number: None

PATIENT
  Sex: Female

DRUGS (3)
  1. FORTEO [Suspect]
     Active Substance: TERIPARATIDE
     Indication: Crohn^s disease
     Dosage: OTHER QUANTITY : 20MCG;?FREQUENCY : DAILY;?
     Route: 058
     Dates: start: 20210211
  2. FORTEO [Suspect]
     Active Substance: TERIPARATIDE
     Indication: Ankylosing spondylitis
  3. HUMIRA [Suspect]
     Active Substance: ADALIMUMAB
     Indication: Ankylosing spondylitis
     Dosage: OTHER FREQUENCY : EVERY 14 DAYS;?
     Route: 058
     Dates: start: 20210706, end: 20210917

REACTIONS (1)
  - Hospitalisation [None]
